FAERS Safety Report 16253756 (Version 1)
Quarter: 2019Q2

REPORT INFORMATION
  Report Type: Spontaneous
  Country: CN (occurrence: CN)
  Receive Date: 20190430
  Receipt Date: 20190430
  Transmission Date: 20190711
  Serious: Yes (Death, Other)
  Sender: FDA-Public Use
  Company Number: CN-BAYER-2019-083429

PATIENT
  Age: 76 Year
  Sex: Female

DRUGS (14)
  1. NOREPINEPHRINE. [Concomitant]
     Active Substance: NOREPINEPHRINE
     Indication: BLOOD PRESSURE ABNORMAL
     Dosage: UNK
     Dates: start: 2016, end: 2016
  2. CEFOPERAZONE + SULBACTAM [Concomitant]
     Active Substance: CEFOPERAZONE SODIUM\SULBACTAM
     Indication: ANTI-INFECTIVE THERAPY
     Dosage: UNK
     Dates: start: 20160324, end: 20160327
  3. TAZOBACTAM SODIUM AND PIPERACILLIN SODIUM [Concomitant]
     Active Substance: PIPERACILLIN SODIUM\TAZOBACTAM SODIUM
     Dosage: UNK
     Dates: start: 20160331, end: 20160410
  4. PREDNISOLONE. [Concomitant]
     Active Substance: PREDNISOLONE
     Dosage: DAILY DOSE 30 MG
     Route: 048
  5. ETIMICIN [Concomitant]
     Active Substance: ETIMICIN SULFATE
     Dosage: UNK
     Dates: start: 20160409, end: 20160410
  6. AVELOX [Suspect]
     Active Substance: MOXIFLOXACIN HYDROCHLORIDE
     Indication: PNEUMONIA
     Dosage: 400 MG, QD
     Route: 041
     Dates: start: 20160324, end: 20160327
  7. AVELOX [Suspect]
     Active Substance: MOXIFLOXACIN HYDROCHLORIDE
     Indication: ANTI-INFECTIVE THERAPY
  8. VANCOMYCIN [Concomitant]
     Active Substance: VANCOMYCIN
     Dosage: UNK
     Dates: start: 20160328, end: 20160406
  9. FUROSEMIDE. [Concomitant]
     Active Substance: FUROSEMIDE
     Indication: DIURETIC THERAPY
     Dosage: UNK
     Dates: start: 2016, end: 2016
  10. SODIUM BICARBONATE. [Concomitant]
     Active Substance: SODIUM BICARBONATE
     Dosage: UNK
     Dates: start: 2016, end: 2016
  11. POTASSIUM [Concomitant]
     Active Substance: POTASSIUM
     Indication: MINERAL SUPPLEMENTATION
     Dosage: UNK
     Dates: start: 2016, end: 2016
  12. CEFOPERAZONE + SULBACTAM [Concomitant]
     Active Substance: CEFOPERAZONE SODIUM\SULBACTAM
     Indication: PNEUMONIA
  13. MEROPENEM. [Concomitant]
     Active Substance: MEROPENEM
     Dosage: UNK
     Dates: start: 20160328, end: 20160330
  14. LOW MOLECULAR WEIGHT HEPARIN [Concomitant]
     Active Substance: UNSPECIFIED INGREDIENT
     Indication: ANTICOAGULANT THERAPY
     Dosage: UNK
     Dates: start: 2016, end: 2016

REACTIONS (6)
  - Pneumothorax [Recovered/Resolved]
  - Death [Fatal]
  - Enterococcus test positive [None]
  - Subcutaneous emphysema [None]
  - Hypoxia [None]
  - Pneumothorax [None]

NARRATIVE: CASE EVENT DATE: 201603
